FAERS Safety Report 5005057-5 (Version None)
Quarter: 2006Q2

REPORT INFORMATION
  Report Type: 
  Country: None (occurrence: None)
  Receive Date: 20060516
  Receipt Date: 20060516
  Transmission Date: 20061013
  Serious: Yes (Hospitalization)
  Sender: FDA-Public Use
  Company Number: None

PATIENT
  Sex: Female
  Weight: 18.5 kg

DRUGS (1)
  1. AZITHROMYCIN [Suspect]
     Indication: OTITIS MEDIA ACUTE
     Dosage: DAILY  PO
     Route: 048
     Dates: start: 20060509, end: 20060513

REACTIONS (1)
  - STEVENS-JOHNSON SYNDROME [None]
